FAERS Safety Report 8441818-8 (Version None)
Quarter: 2012Q2

REPORT INFORMATION
  Report Type: 
  Country: None (occurrence: None)
  Receive Date: 20120615
  Receipt Date: 20110906
  Transmission Date: 20120825
  Serious: No
  Sender: FDA-Public Use
  Company Number: US-NOVEN-11US003129

PATIENT
  Sex: Male

DRUGS (2)
  1. ANTIBIOTIC                         /00011701/ [Concomitant]
     Indication: PRODUCT USED FOR UNKNOWN INDICATION
     Dosage: UNK
     Route: 048
  2. DAYTRANA [Suspect]
     Indication: ATTENTION DEFICIT/HYPERACTIVITY DISORDER
     Dosage: 20 MG, QD
     Route: 062
     Dates: start: 20110831

REACTIONS (4)
  - NO ADVERSE EVENT [None]
  - WRONG TECHNIQUE IN DRUG USAGE PROCESS [None]
  - OFF LABEL USE [None]
  - PRODUCT QUALITY ISSUE [None]
